FAERS Safety Report 13345143 (Version 1)
Quarter: 2017Q1

REPORT INFORMATION
  Report Type: Spontaneous
  Country: US (occurrence: US)
  Receive Date: 20170317
  Receipt Date: 20170317
  Transmission Date: 20170428
  Serious: No
  Sender: FDA-Public Use
  Company Number: US-ELI_LILLY_AND_COMPANY-US201703002134

PATIENT
  Age: 82 Year
  Sex: Male

DRUGS (9)
  1. HUMALOG [Suspect]
     Active Substance: INSULIN LISPRO
     Indication: TYPE 2 DIABETES MELLITUS
     Dosage: UNK UNK, UNKNOWN
     Route: 065
     Dates: start: 2002
  2. LISINOPRIL. [Concomitant]
     Active Substance: LISINOPRIL
  3. HUMALOG [Suspect]
     Active Substance: INSULIN LISPRO
     Dosage: 20-25 UNITS, UNKNOWN
     Route: 065
     Dates: start: 20170225
  4. LANTUS [Concomitant]
     Active Substance: INSULIN GLARGINE
  5. ASPIRIN 81 [Concomitant]
     Active Substance: ASPIRIN
  6. MULTIVITAMIN                       /05516001/ [Concomitant]
  7. HUMALOG [Suspect]
     Active Substance: INSULIN LISPRO
     Dosage: 33 U, UNKNOWN
     Route: 065
     Dates: start: 20170301
  8. HUMALOG [Suspect]
     Active Substance: INSULIN LISPRO
     Dosage: 20-25 UNITS, UNKNOWN
     Route: 065
     Dates: start: 20170225
  9. PRAVASTATIN. [Concomitant]
     Active Substance: PRAVASTATIN

REACTIONS (3)
  - Ear infection [Not Recovered/Not Resolved]
  - Blood glucose increased [Not Recovered/Not Resolved]
  - Drug ineffective [Unknown]

NARRATIVE: CASE EVENT DATE: 20170223
